FAERS Safety Report 4772394-9 (Version None)
Quarter: 2005Q3

REPORT INFORMATION
  Report Type: 
  Country: None (occurrence: None)
  Receive Date: 20050919
  Receipt Date: 20050415
  Transmission Date: 20060218
  Serious: No
  Sender: FDA-Public Use
  Company Number: US-BRISTOL-MYERS SQUIBB COMPANY-12937017

PATIENT

DRUGS (1)
  1. KENALOG-40 [Suspect]
     Route: 023

REACTIONS (2)
  - ATROPHY [None]
  - DRUG ADMINISTRATION ERROR [None]
